FAERS Safety Report 14955637 (Version 1)
Quarter: 2018Q2

REPORT INFORMATION
  Report Type: Report from Study
  Country: None (occurrence: BR)
  Receive Date: 20180531
  Receipt Date: 20180531
  Transmission Date: 20180711
  Serious: Yes (Death, Hospitalization)
  Sender: FDA-Public Use
  Company Number: BR-ABBVIE-18K-020-2372254-00

PATIENT
  Age: 61 Year
  Sex: Male
  Weight: 62 kg

DRUGS (1)
  1. HUMIRA [Suspect]
     Active Substance: ADALIMUMAB
     Indication: ANKYLOSING SPONDYLITIS
     Route: 058
     Dates: start: 20150101

REACTIONS (4)
  - Pancreatic carcinoma [Fatal]
  - Hypophagia [Unknown]
  - Bile duct obstruction [Unknown]
  - Pain [Unknown]

NARRATIVE: CASE EVENT DATE: 201801
